FAERS Safety Report 8419551-8 (Version None)
Quarter: 2012Q2

REPORT INFORMATION
  Report Type: 
  Country: None (occurrence: None)
  Receive Date: 20120604
  Receipt Date: 20120604
  Transmission Date: 20120825
  Serious: Yes (Hospitalization)
  Sender: FDA-Public Use
  Company Number: None

PATIENT
  Age: 52 Year
  Sex: Female
  Weight: 81.6475 kg

DRUGS (1)
  1. ENBREL [Suspect]
     Indication: RHEUMATOID ARTHRITIS
     Dosage: ONE SHOT WEEKLY IM
     Route: 030
     Dates: start: 20090610, end: 20091218

REACTIONS (4)
  - WHITE BLOOD CELL COUNT INCREASED [None]
  - CHRONIC LYMPHOCYTIC LEUKAEMIA [None]
  - ANXIETY [None]
  - LYMPHOCYTE COUNT INCREASED [None]
